FAERS Safety Report 9559165 (Version 3)
Quarter: 2014Q1

REPORT INFORMATION
  Report Type: Spontaneous
  Country: US (occurrence: US)
  Receive Date: 20130927
  Receipt Date: 20140307
  Transmission Date: 20141002
  Serious: No
  Sender: FDA-Public Use
  Company Number: US-009507513-1309USA009948

PATIENT
  Sex: Female

DRUGS (2)
  1. PEGINTRON [Suspect]
     Indication: HEPATITIS C
     Dosage: 0.5 ML, QW
     Route: 058
     Dates: start: 20130906, end: 20140212
  2. REBETOL [Suspect]
     Indication: HEPATITIS C
     Dosage: 800 MG, BID
     Route: 048
     Dates: start: 20130906, end: 20140212

REACTIONS (9)
  - Sinus congestion [Unknown]
  - Tension headache [Unknown]
  - Injection site discolouration [Unknown]
  - Influenza like illness [Unknown]
  - Depression [Unknown]
  - Myalgia [Recovered/Resolved]
  - Back pain [Unknown]
  - Pain in extremity [Unknown]
  - Fatigue [Recovered/Resolved]
